FAERS Safety Report 8510110-5 (Version None)
Quarter: 2012Q3

REPORT INFORMATION
  Report Type: 
  Country: None (occurrence: None)
  Receive Date: 20120713
  Receipt Date: 20120709
  Transmission Date: 20120928
  Serious: No
  Sender: FDA-Public Use
  Company Number: US-PFIZER INC-2012165190

PATIENT
  Sex: Male
  Weight: 90.703 kg

DRUGS (1)
  1. VIAGRA [Suspect]
     Indication: ERECTILE DYSFUNCTION
     Dosage: 100 MG, AS NEEDED
     Dates: start: 20120101, end: 20120601

REACTIONS (3)
  - PRURITUS [None]
  - DRUG INEFFECTIVE [None]
  - HEADACHE [None]
